FAERS Safety Report 8110982 (Version 5)
Quarter: 2013Q2

REPORT INFORMATION
  Report Type: Spontaneous
  Country: US (occurrence: US)
  Receive Date: 20110829
  Receipt Date: 20130425
  Transmission Date: 20140414
  Serious: Yes (Other)
  Sender: FDA-Public Use
  Company Number: US-ROCHE-798708

PATIENT
  Age: 60 Year
  Sex: Female
  Weight: 80.36 kg

DRUGS (4)
  1. ACCUTANE [Suspect]
     Indication: ACNE
     Dosage: 20 MG DAILY AND THEN DOSE WAS INCREASED
     Route: 065
  2. ACCUTANE [Suspect]
     Route: 065
     Dates: start: 20010416, end: 20010701
  3. LISINOPRIL [Concomitant]
  4. LIPITOR [Concomitant]

REACTIONS (10)
  - Inflammatory bowel disease [Unknown]
  - Depression [Unknown]
  - Crohn^s disease [Unknown]
  - Colitis ulcerative [Unknown]
  - Large intestine polyp [Unknown]
  - Rectal polyp [Unknown]
  - Injury [Unknown]
  - Irritable bowel syndrome [Unknown]
  - Lip dry [Unknown]
  - Osteopenia [Unknown]
